FAERS Safety Report 8161556-9 (Version None)
Quarter: 2012Q1

REPORT INFORMATION
  Report Type: 
  Country: None (occurrence: None)
  Receive Date: 20120224
  Receipt Date: 20120213
  Transmission Date: 20120608
  Serious: Yes (Other)
  Sender: FDA-Public Use
  Company Number: US-SANOFI-AVENTIS-2012SA001183

PATIENT
  Age: 81 Year
  Sex: Female
  Weight: 66 kg

DRUGS (2)
  1. ALLEGRA [Suspect]
     Route: 048
  2. ALL OTHER THERAPEUTIC PRODUCTS [Concomitant]

REACTIONS (3)
  - DYSPHAGIA [None]
  - MALIGNANT NEOPLASM OF SPINAL CORD [None]
  - DECREASED IMMUNE RESPONSIVENESS [None]
